FAERS Safety Report 23932107 (Version 1)
Quarter: 2024Q2

REPORT INFORMATION
  Report Type: Spontaneous
  Country: ES (occurrence: ES)
  Receive Date: 20240603
  Receipt Date: 20240603
  Transmission Date: 20240716
  Serious: Yes (Death)
  Sender: FDA-Public Use
  Company Number: None

PATIENT
  Age: 19 Year
  Sex: Female
  Weight: 58 kg

DRUGS (6)
  1. METHOTREXATE [Suspect]
     Active Substance: METHOTREXATE
     Indication: Psoriatic arthropathy
     Dosage: STRENGTH: 15 MG, 0.3 ML PREFILLED SYRINGE, 15 MG/WEEK
     Dates: start: 20240103, end: 20240226
  2. METHYLPREDNISOLONE [Suspect]
     Active Substance: METHYLPREDNISOLONE
     Indication: Psoriatic arthropathy
     Dates: start: 20240226, end: 20240226
  3. METHOTREXATE SODIUM [Suspect]
     Active Substance: METHOTREXATE SODIUM
     Indication: Psoriatic arthropathy
     Dosage: STRENGTH:25 MG/ 0.50 ML, IN PRE-FILLED SYRINGE, 1 PREFILLED SYRINGE OF 0.5 ML, ONCE A WEEK
     Route: 058
     Dates: start: 20240226
  4. PREDNISONE [Suspect]
     Active Substance: PREDNISONE
     Indication: Psoriatic arthropathy
     Dosage: STRENGTH: 10 MG, 10 M/DAY FOR 7 DAYS AND DESCENDING REGIMEN TO 5 MG FOR ANOTHER 7 DAYS
     Dates: start: 20240226, end: 20240311
  5. ETORICOXIB [Suspect]
     Active Substance: ETORICOXIB
     Indication: Psoriatic arthropathy
     Dosage: STRENGTH: 90 MG
     Dates: start: 20240226
  6. FOLIC ACID [Concomitant]
     Active Substance: FOLIC ACID
     Dosage: STRENGTH: 5 MG

REACTIONS (1)
  - Completed suicide [Fatal]

NARRATIVE: CASE EVENT DATE: 20240312
